FAERS Safety Report 12798663 (Version 3)
Quarter: 2016Q4

REPORT INFORMATION
  Report Type: Spontaneous
  Country: US (occurrence: US)
  Receive Date: 20160930
  Receipt Date: 20161216
  Transmission Date: 20170207
  Serious: Yes (Other)
  Sender: FDA-Public Use
  Company Number: US-ASTRAZENECA-2016SF03180

PATIENT
  Age: 10199 Day
  Sex: Male
  Weight: 97.5 kg

DRUGS (14)
  1. NORTRIPTYLINE [Concomitant]
     Active Substance: NORTRIPTYLINE
     Indication: MAJOR DEPRESSION
     Route: 048
     Dates: start: 2015
  2. SEROQUEL [Suspect]
     Active Substance: QUETIAPINE FUMARATE
     Indication: MAJOR DEPRESSION
     Route: 048
     Dates: start: 20151209, end: 20160914
  3. PROZAC [Concomitant]
     Active Substance: FLUOXETINE HYDROCHLORIDE
     Indication: ANXIETY
     Route: 048
     Dates: start: 2014
  4. SEROQUEL [Suspect]
     Active Substance: QUETIAPINE FUMARATE
     Indication: ANXIETY
     Route: 048
     Dates: start: 20151209, end: 20160914
  5. CLONAZEPAM. [Concomitant]
     Active Substance: CLONAZEPAM
     Indication: MAJOR DEPRESSION
     Route: 048
  6. CLONAZEPAM. [Concomitant]
     Active Substance: CLONAZEPAM
     Indication: ANXIETY
     Route: 048
  7. DILANTIN [Concomitant]
     Active Substance: PHENYTOIN
     Indication: SEIZURE
     Route: 048
     Dates: start: 201412
  8. SEROQUEL [Suspect]
     Active Substance: QUETIAPINE FUMARATE
     Indication: INSOMNIA
     Route: 048
     Dates: start: 20151209, end: 20160914
  9. PROZAC [Concomitant]
     Active Substance: FLUOXETINE HYDROCHLORIDE
     Indication: INSOMNIA
     Route: 048
     Dates: start: 2014
  10. PROZAC [Concomitant]
     Active Substance: FLUOXETINE HYDROCHLORIDE
     Indication: MAJOR DEPRESSION
     Route: 048
     Dates: start: 2014
  11. CLONAZEPAM. [Concomitant]
     Active Substance: CLONAZEPAM
     Indication: INSOMNIA
     Route: 048
  12. NORTRIPTYLINE [Concomitant]
     Active Substance: NORTRIPTYLINE
     Indication: HEADACHE
     Route: 048
     Dates: start: 2015
  13. NORTRIPTYLINE [Concomitant]
     Active Substance: NORTRIPTYLINE
     Indication: ANXIETY
     Route: 048
     Dates: start: 2015
  14. NORTRIPTYLINE [Concomitant]
     Active Substance: NORTRIPTYLINE
     Indication: INSOMNIA
     Route: 048
     Dates: start: 2015

REACTIONS (14)
  - Dizziness [Unknown]
  - Loss of libido [Unknown]
  - Gynaecomastia [Not Recovered/Not Resolved]
  - Drug withdrawal syndrome [Unknown]
  - Galactorrhoea [Recovering/Resolving]
  - Poor quality sleep [Unknown]
  - Off label use [Unknown]
  - Breast swelling [Unknown]
  - Blood cholesterol increased [Unknown]
  - Product use issue [Unknown]
  - Night sweats [Unknown]
  - Hot flush [Unknown]
  - Feeling abnormal [Unknown]
  - Weight increased [Unknown]

NARRATIVE: CASE EVENT DATE: 20160914
